FAERS Safety Report 23859869 (Version 5)
Quarter: 2024Q2

REPORT INFORMATION
  Report Type: Report from Study
  Country: CA (occurrence: CA)
  Receive Date: 20240515
  Receipt Date: 20240620
  Transmission Date: 20240715
  Serious: Yes (Other)
  Sender: FDA-Public Use
  Company Number: CA-KOREA IPSEN Pharma-2022-22244

PATIENT
  Age: 54 Year
  Sex: Female

DRUGS (7)
  1. LANREOTIDE ACETATE [Suspect]
     Active Substance: LANREOTIDE ACETATE
     Indication: Gastroenteropancreatic neuroendocrine tumour disease
     Dosage: 120 MG EVERY THREE WEEKS, VIA DEEP SUBCUTANEOUS ROUTE
     Route: 058
     Dates: start: 20141009
  2. LANREOTIDE ACETATE [Suspect]
     Active Substance: LANREOTIDE ACETATE
     Dosage: VIA DEEP SUBCUTANEOUS ROUTE
     Route: 058
  3. LANREOTIDE ACETATE [Suspect]
     Active Substance: LANREOTIDE ACETATE
     Route: 058
     Dates: start: 201608
  4. BISOPROLOL [Concomitant]
     Active Substance: BISOPROLOL\BISOPROLOL FUMARATE
     Dosage: 5 MG
  5. RAMIPRIL [Concomitant]
     Active Substance: RAMIPRIL
  6. VENTOLIN [Concomitant]
     Active Substance: ALBUTEROL SULFATE
  7. LUTETIUM [Concomitant]

REACTIONS (11)
  - Lung neoplasm malignant [Not Recovered/Not Resolved]
  - Renal failure [Not Recovered/Not Resolved]
  - Bradycardia [Not Recovered/Not Resolved]
  - Abdominal pain [Unknown]
  - Nasopharyngitis [Unknown]
  - Heart rate decreased [Unknown]
  - Influenza [Unknown]
  - Pain [Unknown]
  - Constipation [Unknown]
  - Diarrhoea [Unknown]
  - Off label use [Unknown]

NARRATIVE: CASE EVENT DATE: 20141009
